FAERS Safety Report 8245147-7 (Version None)
Quarter: 2012Q1

REPORT INFORMATION
  Report Type: 
  Country: None (occurrence: None)
  Receive Date: 20120329
  Receipt Date: 20120322
  Transmission Date: 20120608
  Serious: Yes (Hospitalization)
  Sender: FDA-Public Use
  Company Number: FR-ABBOTT-12P-056-0917822-00

PATIENT
  Sex: Male

DRUGS (4)
  1. KEPPRA [Concomitant]
     Indication: CEREBRAL TOXOPLASMOSIS
     Dates: start: 20100602
  2. INTELENCE [Concomitant]
     Indication: PRODUCT USED FOR UNKNOWN INDICATION
  3. PREZISTA [Suspect]
     Indication: HIV INFECTION
     Route: 048
     Dates: start: 20100222, end: 20111109
  4. NORVIR [Suspect]
     Indication: HIV INFECTION
     Route: 048
     Dates: start: 20100222, end: 20111109

REACTIONS (1)
  - DYSLIPIDAEMIA [None]
